FAERS Safety Report 8871309 (Version 1)
Quarter: 2012Q4

REPORT INFORMATION
  Report Type: 
  Country: US (occurrence: US)
  Receive Date: 20121026
  Receipt Date: 20121026
  Transmission Date: 20130627
  Serious: No
  Sender: FDA-Public Use
  Company Number: US-AMGEN-USASP2012048274

PATIENT
  Age: 54 Year
  Sex: Male
  Weight: 102.4 kg

DRUGS (7)
  1. ENBREL [Suspect]
     Indication: PSORIASIS
     Dosage: 50 mg, qwk
     Route: 058
  2. TOPROL [Concomitant]
     Dosage: 25 mg, UNK
  3. VYTORIN [Concomitant]
     Dosage: 10-10 mg
  4. OMEGA 3                            /01334101/ [Concomitant]
     Dosage: UNK
  5. COQ10                              /00517201/ [Concomitant]
     Dosage: 30 mg, UNK
  6. MULTIVITAMIN                       /00097801/ [Concomitant]
     Dosage: UNK
  7. LEVOXYL [Concomitant]
     Dosage: 25 mug, UNK

REACTIONS (1)
  - Psoriasis [Unknown]
